FAERS Safety Report 16089598 (Version 1)
Quarter: 2019Q1

REPORT INFORMATION
  Report Type: Spontaneous
  Country: US (occurrence: US)
  Receive Date: 20190319
  Receipt Date: 20190319
  Transmission Date: 20190418
  Serious: No
  Sender: FDA-Public Use
  Company Number: US-SA-2019SA070304

PATIENT
  Age: 80 Year
  Sex: Male

DRUGS (1)
  1. LANTUS [Suspect]
     Active Substance: INSULIN GLARGINE
     Indication: TYPE 2 DIABETES MELLITUS
     Dosage: TAKES 40 UNITS OF LANTUS IN THE MORNING AND 18 UNITS OF LANTUS IN THE EVENING
     Route: 065
     Dates: start: 201811

REACTIONS (1)
  - Inappropriate schedule of product administration [Unknown]
